FAERS Safety Report 16890323 (Version 1)
Quarter: 2019Q4

REPORT INFORMATION
  Report Type: Spontaneous
  Country: US (occurrence: US)
  Receive Date: 20191005
  Receipt Date: 20191005
  Transmission Date: 20200122
  Serious: Yes (Hospitalization, Disabling, Other)
  Sender: FDA-Public Use
  Company Number: None

PATIENT
  Age: 46 Year
  Sex: Male
  Weight: 107.1 kg

DRUGS (1)
  1. ACCUTANE [Suspect]
     Active Substance: ISOTRETINOIN
     Indication: ACNE CYSTIC
     Dates: start: 20021101, end: 20030401

REACTIONS (5)
  - Suicide attempt [None]
  - Disability [None]
  - Psoriatic arthropathy [None]
  - Mental disorder [None]
  - Crohn^s disease [None]

NARRATIVE: CASE EVENT DATE: 20030401
